FAERS Safety Report 4502937-1 (Version None)
Quarter: 2004Q4

REPORT INFORMATION
  Report Type: 
  Country: None (occurrence: None)
  Receive Date: 20041112
  Receipt Date: 20041029
  Transmission Date: 20050328
  Serious: Yes (Other)
  Sender: FDA-Public Use
  Company Number: 04USA0248

PATIENT
  Age: 51 Year
  Sex: Female

DRUGS (10)
  1. AGGRASTAT [Suspect]
     Indication: THROMBOSIS PROPHYLAXIS
     Dosage: 4.1 MCG
  2. HEPARIN [Suspect]
     Indication: THROMBOSIS PROPHYLAXIS
     Dosage: 5,000 U BOLUS
  3. CLOPIDOGREL BISULFATE [Suspect]
     Indication: THROMBOSIS PROPHYLAXIS
  4. RIZATRIPTAN (RIZATRIPTAN BENZOATE) [Concomitant]
  5. ESOMEPRAZOLE (ESOMEPRAZOLE) [Concomitant]
  6. GEMFIBROZIL [Concomitant]
  7. NABUMETONE [Concomitant]
  8. RANITIDINE [Concomitant]
  9. TOPIRAMATE [Concomitant]
  10. ZOLPIDEM TARTRATE [Concomitant]

REACTIONS (11)
  - DIPLOPIA [None]
  - DISORDER OF ORBIT [None]
  - EXOPHTHALMOS [None]
  - EYE PAIN [None]
  - HAEMATOMA [None]
  - MASS [None]
  - POST PROCEDURAL COMPLICATION [None]
  - PROCEDURAL COMPLICATION [None]
  - STRABISMUS [None]
  - VENOUS PRESSURE INCREASED [None]
  - VISUAL FIELD DEFECT [None]
